FAERS Safety Report 14532182 (Version 3)
Quarter: 2019Q1

REPORT INFORMATION
  Report Type: Spontaneous
  Country: US (occurrence: US)
  Receive Date: 20180214
  Receipt Date: 20190321
  Transmission Date: 20190417
  Serious: Yes (Hospitalization)
  Sender: FDA-Public Use
  Company Number: US-ACTELION-A-US2018-167496

PATIENT
  Age: 76 Year
  Sex: Female

DRUGS (2)
  1. NIFEDIPINE. [Concomitant]
     Active Substance: NIFEDIPINE
  2. TRACLEER [Suspect]
     Active Substance: BOSENTAN
     Indication: PULMONARY ARTERIAL HYPERTENSION
     Dosage: 125 MG, BID
     Route: 048

REACTIONS (7)
  - Kidney infection [Unknown]
  - Asthenia [Unknown]
  - Impaired self-care [Unknown]
  - Unevaluable event [Unknown]
  - Pyrexia [Unknown]
  - Malaise [Unknown]
  - Localised infection [Unknown]

NARRATIVE: CASE EVENT DATE: 20180203
